FAERS Safety Report 17998829 (Version 2)
Quarter: 2021Q2

REPORT INFORMATION
  Report Type: Spontaneous
  Country: US (occurrence: US)
  Receive Date: 20200709
  Receipt Date: 20210412
  Transmission Date: 20210717
  Serious: Yes (Other)
  Sender: FDA-Public Use
  Company Number: US-GLAXOSMITHKLINE-US2020124708

PATIENT
  Sex: Female

DRUGS (6)
  1. RANITIDINE. [Suspect]
     Active Substance: RANITIDINE
     Indication: ABDOMINAL DISCOMFORT
     Dosage: 300 MG PRESCRIPTION
     Route: 065
     Dates: start: 199805, end: 202003
  2. ZANTAC [Suspect]
     Active Substance: RANITIDINE HYDROCHLORIDE
     Indication: ABDOMINAL DISCOMFORT
     Dosage: 300 MG PRESCRIPTION
     Route: 065
     Dates: start: 199805, end: 202003
  3. RANITIDINE. [Suspect]
     Active Substance: RANITIDINE
     Indication: ABDOMINAL DISCOMFORT
     Dosage: 300 MG PRESCRIPTION
     Route: 065
     Dates: start: 199805, end: 202003
  4. RANITIDINE. [Suspect]
     Active Substance: RANITIDINE
     Route: 065
  5. ZANTAC [Suspect]
     Active Substance: RANITIDINE HYDROCHLORIDE
     Route: 065
  6. ZANTAC [Suspect]
     Active Substance: RANITIDINE HYDROCHLORIDE
     Indication: ABDOMINAL DISCOMFORT
     Dosage: 300 MG PRESCRIPTION
     Route: 065
     Dates: start: 199805, end: 202003

REACTIONS (2)
  - Gastrointestinal carcinoma [Unknown]
  - Cervix carcinoma [Unknown]
